FAERS Safety Report 15639127 (Version 3)
Quarter: 2022Q3

REPORT INFORMATION
  Report Type: Spontaneous
  Country: IT (occurrence: IT)
  Receive Date: 20181120
  Receipt Date: 20220926
  Transmission Date: 20221027
  Serious: Yes (Death, Other)
  Sender: FDA-Public Use
  Company Number: IT-BOEHRINGERINGELHEIM-2017-BI-060627

PATIENT
  Age: 53 Year
  Sex: Male
  Weight: 100 kg

DRUGS (9)
  1. PEMETREXED [Suspect]
     Active Substance: PEMETREXED
     Indication: Pleural mesothelioma malignant
     Dosage: 500 MG/M2, CYCLICAL
     Route: 042
     Dates: start: 201404
  2. PEMETREXED [Suspect]
     Active Substance: PEMETREXED
     Dosage: 500 MG/M2, CYCLICAL
     Route: 042
     Dates: start: 201505
  3. GEMCITABINE HYDROCHLORIDE [Suspect]
     Active Substance: GEMCITABINE HYDROCHLORIDE
     Indication: Pleural mesothelioma malignant
     Dosage: UNK, UNKNOWN
     Route: 065
     Dates: start: 201502
  4. NINTEDANIB [Suspect]
     Active Substance: NINTEDANIB
     Indication: Pleural mesothelioma malignant
     Dosage: 200 MG, BID
     Route: 048
     Dates: start: 201404
  5. NINTEDANIB [Suspect]
     Active Substance: NINTEDANIB
     Dosage: 200 MG, BID
     Route: 048
     Dates: start: 201505
  6. VINORELBINE [Suspect]
     Active Substance: VINORELBINE TARTRATE
     Indication: Pleural mesothelioma malignant
     Dosage: UNK UNK, UNKNOWN
     Route: 065
     Dates: start: 201512
  7. TRABECTEDIN [Suspect]
     Active Substance: TRABECTEDIN
     Indication: Pleural mesothelioma malignant
     Dosage: 1.1 MG/M2, 1.1 MG/M2 IV TRABECTEDIN INFUSION IN 5% GLUCOSE OVER 3 HOURS EVERY 21 DAYS
     Route: 042
     Dates: start: 201501
  8. CISPLATIN [Suspect]
     Active Substance: CISPLATIN
     Indication: Pleural mesothelioma malignant
     Dosage: 75 MG/M2, CYCLICAL
     Route: 042
     Dates: start: 201404
  9. CARBOPLATIN [Suspect]
     Active Substance: CARBOPLATIN
     Indication: Pleural mesothelioma malignant
     Dosage: UNK, UNKNOWN
     Route: 065
     Dates: start: 201509

REACTIONS (4)
  - Malignant neoplasm progression [Fatal]
  - Embolism venous [Unknown]
  - Oedema peripheral [Unknown]
  - Off label use [Unknown]

NARRATIVE: CASE EVENT DATE: 20140101
